FAERS Safety Report 20438532 (Version 3)
Quarter: 2023Q2

REPORT INFORMATION
  Report Type: Spontaneous
  Country: US (occurrence: US)
  Receive Date: 20220207
  Receipt Date: 20230602
  Transmission Date: 20230721
  Serious: Yes (Other)
  Sender: FDA-Public Use
  Company Number: US-PFIZER INC-2020140894

PATIENT
  Age: 68 Year
  Sex: Female

DRUGS (2)
  1. IBRANCE [Suspect]
     Active Substance: PALBOCICLIB
     Indication: Breast cancer metastatic
     Dosage: 125 MG, CYCLIC(1 TABLET ORALLY DAILY, FOR 21 DAYS, THEN 7 DAYS OFF)
     Route: 048
  2. IBRANCE [Suspect]
     Active Substance: PALBOCICLIB
     Indication: Breast cancer female

REACTIONS (13)
  - Vena cava thrombosis [Not Recovered/Not Resolved]
  - Neutropenia [Not Recovered/Not Resolved]
  - Laryngitis [Unknown]
  - Bronchitis [Unknown]
  - Nervousness [Unknown]
  - Bone pain [Not Recovered/Not Resolved]
  - Computerised tomogram abnormal [Not Recovered/Not Resolved]
  - Headache [Not Recovered/Not Resolved]
  - Hypertension [Not Recovered/Not Resolved]
  - Protein total abnormal [Recovered/Resolved]
  - Pulmonary mass [Not Recovered/Not Resolved]
  - Thyroid mass [Not Recovered/Not Resolved]
  - Drug dispensed to wrong patient [Unknown]

NARRATIVE: CASE EVENT DATE: 20200309
